FAERS Safety Report 6185311-4 (Version None)
Quarter: 2009Q2

REPORT INFORMATION
  Report Type: 
  Country: None (occurrence: None)
  Receive Date: 20090511
  Receipt Date: 20090504
  Transmission Date: 20091009
  Serious: Yes (Other)
  Sender: FDA-Public Use
  Company Number: US-ROCHE-631261

PATIENT
  Age: 57 Year
  Sex: Female

DRUGS (10)
  1. DIAZEPAM [Suspect]
     Indication: DRUG USE FOR UNKNOWN INDICATION
     Route: 048
  2. TORADOL [Suspect]
     Indication: DRUG USE FOR UNKNOWN INDICATION
     Route: 030
  3. LIDOCAINE [Suspect]
     Indication: DRUG USE FOR UNKNOWN INDICATION
     Dosage: ROUTE: TOPICAL
     Route: 050
  4. LIDOCAINE [Suspect]
     Dosage: ROUTE: UNKNOWN
     Route: 050
  5. PRILOCAINE [Suspect]
     Indication: DRUG USE FOR UNKNOWN INDICATION
     Route: 065
  6. EPINEPHRINE [Suspect]
     Indication: DRUG USE FOR UNKNOWN INDICATION
     Route: 065
  7. ZINC OXIDE [Suspect]
     Indication: DRUG USE FOR UNKNOWN INDICATION
     Route: 061
  8. VINEGAR [Suspect]
     Indication: DRUG USE FOR UNKNOWN INDICATION
     Dosage: VINEGAR SOAKS
     Route: 065
  9. KEFLEX [Suspect]
     Indication: DRUG USE FOR UNKNOWN INDICATION
     Route: 065
  10. ACYCLOVIR [Suspect]
     Indication: DRUG USE FOR UNKNOWN INDICATION
     Route: 065

REACTIONS (5)
  - ECTROPION [None]
  - EYE DISCHARGE [None]
  - EYELID DISORDER [None]
  - EYELID OEDEMA [None]
  - PRURITUS [None]
